FAERS Safety Report 9315726 (Version 1)
Quarter: 2013Q2

REPORT INFORMATION
  Report Type: Report from Study
  Country: US (occurrence: US)
  Receive Date: 20130529
  Receipt Date: 20130529
  Transmission Date: 20140414
  Serious: Yes (Other)
  Sender: FDA-Public Use
  Company Number: US-ABBOTT-13P-163-1096493-00

PATIENT
  Age: 24 Year
  Sex: Female

DRUGS (5)
  1. LUPRON DEPOT [Suspect]
     Indication: OFF LABEL USE
     Dates: start: 2000
  2. LUPRON DEPOT [Suspect]
     Indication: INFERTILITY
     Dates: start: 2011
  3. LUPRON DEPOT [Suspect]
     Indication: VAGINAL HAEMORRHAGE
  4. MORPHINE [Suspect]
     Indication: ABDOMINAL PAIN
     Dates: start: 201302, end: 201302
  5. UNKNOWN BIRTH CONTROL [Concomitant]
     Indication: PRODUCT USED FOR UNKNOWN INDICATION

REACTIONS (11)
  - Ectopic pregnancy [Unknown]
  - Ovarian cyst [Unknown]
  - Vaginal haemorrhage [Not Recovered/Not Resolved]
  - Cervix enlargement [Not Recovered/Not Resolved]
  - Abdominal pain [Unknown]
  - Thrombosis [Unknown]
  - Abdominal pain [Unknown]
  - Nausea [Unknown]
  - Pain [Unknown]
  - Breast mass [Unknown]
  - Off label use [Unknown]
